FAERS Safety Report 8774192 (Version 1)
Quarter: 2012Q4

REPORT INFORMATION
  Report Type: 
  Country: US (occurrence: US)
  Receive Date: 20120907
  Receipt Date: 20120907
  Transmission Date: 20130627
  Serious: Yes (Other)
  Sender: FDA-Public Use
  Company Number: US-ASTRAZENECA-2012SE65554

PATIENT
  Age: 50 Year
  Sex: Female
  Weight: 63.5 kg

DRUGS (10)
  1. SYMBICORT [Suspect]
     Indication: ASTHMA
     Dosage: 160/4.5 MCGS, PRN
     Route: 055
  2. SYMBICORT [Suspect]
     Indication: CHRONIC OBSTRUCTIVE PULMONARY DISEASE
     Dosage: 160/4.5 MCGS, PRN
     Route: 055
  3. NEXIUM [Suspect]
     Route: 048
  4. SEROQUEL XR [Suspect]
     Indication: BIPOLAR I DISORDER
     Route: 048
  5. CITALOPRAM [Concomitant]
     Route: 048
  6. PLAVIX [Concomitant]
     Route: 048
  7. PRAVASTATIN [Concomitant]
     Route: 048
  8. LISINOPRIL [Concomitant]
     Route: 048
  9. ISOSORB [Concomitant]
     Route: 042
  10. OXYGEN [Concomitant]

REACTIONS (4)
  - Myocardial infarction [Unknown]
  - Oxygen saturation decreased [Unknown]
  - Off label use [Unknown]
  - Drug dose omission [Unknown]
